FAERS Safety Report 10561196 (Version 1)
Quarter: 2014Q4

REPORT INFORMATION
  Report Type: Spontaneous
  Country: US (occurrence: US)
  Receive Date: 20141103
  Receipt Date: 20141103
  Transmission Date: 20150529
  Serious: No
  Sender: FDA-Public Use
  Company Number: US-BAYER-2014-161452

PATIENT
  Sex: Female

DRUGS (1)
  1. ESTRADIOL HEMIHYDRATE (PATCH) [Suspect]
     Active Substance: ESTRADIOL HEMIHYDRATE
     Dosage: UNK
     Route: 062

REACTIONS (4)
  - Rash [Not Recovered/Not Resolved]
  - Pharyngeal oedema [Not Recovered/Not Resolved]
  - Peripheral swelling [Not Recovered/Not Resolved]
  - Application site discomfort [Not Recovered/Not Resolved]
